FAERS Safety Report 7918306-8 (Version None)
Quarter: 2011Q4

REPORT INFORMATION
  Report Type: 
  Country: None (occurrence: None)
  Receive Date: 20111116
  Receipt Date: 20111111
  Transmission Date: 20120403
  Serious: Yes (Other)
  Sender: FDA-Public Use
  Company Number: DE-GLAXOSMITHKLINE-D0073141A

PATIENT
  Sex: Female
  Weight: 75 kg

DRUGS (2)
  1. WINE [Concomitant]
     Dosage: .5BT PER DAY
     Route: 048
  2. CLOBETASOL PROPIONATE [Suspect]
     Indication: GRANULOMA ANNULARE
     Route: 061
     Dates: start: 20110414, end: 20111025

REACTIONS (1)
  - TRANSAMINASES INCREASED [None]
